FAERS Safety Report 5395757-X (Version None)
Quarter: 2007Q3

REPORT INFORMATION
  Report Type: 
  Country: None (occurrence: None)
  Receive Date: 20070724
  Receipt Date: 20070717
  Transmission Date: 20080115
  Serious: Yes (Life-Threatening, Hospitalization)
  Sender: FDA-Public Use
  Company Number: FR-ABBOTT-07P-056-0374818-00

PATIENT
  Sex: Male
  Weight: 57 kg

DRUGS (11)
  1. KALETRA [Suspect]
     Indication: DRUG USE FOR UNKNOWN INDICATION
     Route: 048
     Dates: start: 20070415, end: 20070613
  2. ABACAVIR W/LAMIVUDINE [Suspect]
     Indication: DRUG USE FOR UNKNOWN INDICATION
     Route: 048
     Dates: start: 20070415, end: 20070613
  3. DIDANOSINE [Suspect]
     Indication: SYSTEMIC ANTIVIRAL TREATMENT
     Route: 048
     Dates: start: 19971001, end: 20061209
  4. DIDANOSINE [Suspect]
     Dates: start: 19960501, end: 19961001
  5. STAVUDINE [Suspect]
     Indication: SYSTEMIC ANTIVIRAL TREATMENT
     Route: 048
     Dates: start: 19980401, end: 20061209
  6. STAVUDINE [Suspect]
     Dates: start: 19961001, end: 19971001
  7. NELFINAVIR [Suspect]
     Indication: SYSTEMIC ANTIVIRAL TREATMENT
     Route: 048
     Dates: start: 19980401, end: 20061209
  8. BACTRIM [Concomitant]
     Indication: ANTIBIOTIC PROPHYLAXIS
     Route: 048
     Dates: start: 19890101
  9. FENOFIBRATE [Concomitant]
     Indication: DRUG USE FOR UNKNOWN INDICATION
     Route: 048
  10. CLONAZEPAM [Concomitant]
     Indication: DRUG USE FOR UNKNOWN INDICATION
     Route: 048
  11. AMITRIPTYLINE HCL [Concomitant]
     Indication: NEUROPATHY
     Route: 048

REACTIONS (11)
  - ANOREXIA [None]
  - CACHEXIA [None]
  - CONSTIPATION [None]
  - DECREASED ACTIVITY [None]
  - DIABETES MELLITUS [None]
  - KETOACIDOSIS [None]
  - LACTIC ACIDOSIS [None]
  - PANCREATITIS ACUTE [None]
  - RENAL FAILURE [None]
  - SKIN DISORDER [None]
  - SPEECH DISORDER [None]
